FAERS Safety Report 26092412 (Version 2)
Quarter: 2025Q4

REPORT INFORMATION
  Report Type: Spontaneous
  Country: AR (occurrence: AR)
  Receive Date: 20251126
  Receipt Date: 20251223
  Transmission Date: 20260118
  Serious: Yes (Other)
  Sender: SANDOZ
  Company Number: AR-002147023-NVSC2025AR171819

PATIENT
  Sex: Female

DRUGS (5)
  1. FULVESTRANT [Suspect]
     Active Substance: FULVESTRANT
     Indication: Product used for unknown indication
     Dosage: UNK UNK, Q4W
  2. FULVESTRANT [Suspect]
     Active Substance: FULVESTRANT
     Dosage: UNK, 28D
  3. ZOLEDRONIC ACID [Suspect]
     Active Substance: ZOLEDRONIC ACID
     Indication: Product used for unknown indication
     Dosage: 4 MG, Q3MO
  4. KISQALI [Suspect]
     Active Substance: RIBOCICLIB SUCCINATE
     Indication: Breast cancer metastatic
     Dosage: 600 MG, QD (THREE TABLETS A DAY FOR 21  DAYS, FOLLOWED BY A SEVEN-DAY BREAK)
     Dates: start: 20240714
  5. KISQALI [Suspect]
     Active Substance: RIBOCICLIB SUCCINATE
     Dosage: 200 MG

REACTIONS (7)
  - Thrombosis [Unknown]
  - Arthropathy [Unknown]
  - Gait disturbance [Unknown]
  - Concomitant disease aggravated [Unknown]
  - Osteopenia [Unknown]
  - Limb discomfort [Unknown]
  - Arthralgia [Recovering/Resolving]
